FAERS Safety Report 4656308-8 (Version None)
Quarter: 2005Q2

REPORT INFORMATION
  Report Type: 
  Country: None (occurrence: None)
  Receive Date: 20050509
  Receipt Date: 20050405
  Transmission Date: 20051028
  Serious: No
  Sender: FDA-Public Use
  Company Number: US-GLAXOSMITHKLINE-A0552805A

PATIENT
  Age: 49 Year
  Sex: Female

DRUGS (8)
  1. AVANDAMET [Suspect]
     Indication: DIABETES MELLITUS NON-INSULIN-DEPENDENT
     Dosage: 2TAB TWICE PER DAY
     Route: 048
  2. LIPITOR [Concomitant]
  3. TRICOR [Concomitant]
  4. ALTACE [Concomitant]
  5. METOPROLOL [Concomitant]
     Route: 065
  6. GLIPIZIDE [Concomitant]
     Route: 065
  7. HYDROCHLOROTHIAZIDE [Concomitant]
     Route: 065
  8. NORVASC [Concomitant]

REACTIONS (1)
  - WEIGHT INCREASED [None]
